FAERS Safety Report 8890103 (Version 1)
Quarter: 2012Q4

REPORT INFORMATION
  Report Type: Spontaneous
  Country: FR (occurrence: None)
  Receive Date: 20121101
  Receipt Date: 20121101
  Transmission Date: 20130627
  Serious: Yes (Hospitalization)
  Sender: FDA-Public Use
  Company Number: TPA2012A08582

PATIENT
  Age: 59 Year
  Sex: Male

DRUGS (3)
  1. ADENURIC [Suspect]
     Indication: DRUG USE FOR UNKNOWN INDICATION
     Route: 048
     Dates: start: 20120820, end: 20120910
  2. CARDENSIEL [Concomitant]
  3. SEROPRAM [Concomitant]

REACTIONS (5)
  - Polyneuropathy [None]
  - Insomnia [None]
  - Hypertriglyceridaemia [None]
  - Leukocytosis [None]
  - Neutrophilia [None]
